FAERS Safety Report 6332247-1 (Version None)
Quarter: 2009Q3

REPORT INFORMATION
  Report Type: 
  Country: None (occurrence: None)
  Receive Date: 20090827
  Receipt Date: 20090827
  Transmission Date: 20100115
  Serious: No
  Sender: FDA-Public Use
  Company Number: None

PATIENT
  Age: 42 Year
  Sex: Female
  Weight: 93.44 kg

DRUGS (2)
  1. VENLAFAXINE [Suspect]
     Indication: DEPRESSION
     Dosage: 150 MG EVERY DAY PO
     Route: 048
     Dates: start: 20090601, end: 20090821
  2. VENLAFAXINE [Suspect]
     Indication: POST-TRAUMATIC STRESS DISORDER
     Dosage: 150 MG EVERY DAY PO
     Route: 048
     Dates: start: 20090601, end: 20090821

REACTIONS (3)
  - COGNITIVE DISORDER [None]
  - DEPRESSED MOOD [None]
  - DEPRESSION [None]
